FAERS Safety Report 5480313-5 (Version None)
Quarter: 2007Q3

REPORT INFORMATION
  Report Type: 
  Country: None (occurrence: None)
  Receive Date: 20070913
  Receipt Date: 20070319
  Transmission Date: 20080115
  Serious: Yes (Other)
  Sender: FDA-Public Use
  Company Number: PHEH2007US03250

PATIENT
  Age: 74 Year
  Sex: Male

DRUGS (3)
  1. DIOVAN [Suspect]
     Indication: HYPERTENSION
     Dosage: 320 MG, QD; 160 M G, QD; 320 MG, QD
     Dates: start: 20000101, end: 20070301
  2. DIOVAN [Suspect]
     Indication: HYPERTENSION
     Dosage: 320 MG, QD; 160 M G, QD; 320 MG, QD
     Dates: start: 20070301, end: 20070316
  3. DIOVAN [Suspect]
     Indication: HYPERTENSION
     Dosage: 320 MG, QD; 160 M G, QD; 320 MG, QD
     Dates: start: 20070319

REACTIONS (2)
  - BLOOD PRESSURE INCREASED [None]
  - MYALGIA [None]
